FAERS Safety Report 4529578-4 (Version None)
Quarter: 2004Q4

REPORT INFORMATION
  Report Type: 
  Country: None (occurrence: None)
  Receive Date: 20041216
  Receipt Date: 20041213
  Transmission Date: 20050328
  Serious: Yes (Other)
  Sender: FDA-Public Use
  Company Number: US-MERCK-0412USA01711

PATIENT
  Age: 53 Year
  Sex: Male

DRUGS (14)
  1. VIOXX [Suspect]
     Indication: PAIN IN EXTREMITY
     Route: 048
     Dates: start: 20001201, end: 20030101
  2. NITROGLYCERIN [Concomitant]
     Route: 065
  3. PAXIL [Concomitant]
     Route: 065
  4. LIPITOR [Concomitant]
     Route: 065
  5. LISINOPRIL [Concomitant]
     Route: 065
  6. ACTOS [Concomitant]
     Route: 065
  7. NEURONTIN [Concomitant]
     Route: 065
  8. NEXIUM [Concomitant]
     Route: 065
  9. AMITRIPTYLINE HYDROCHLORIDE [Concomitant]
     Route: 065
  10. METFORMIN [Concomitant]
     Route: 065
  11. ATENOLOL [Concomitant]
     Route: 065
  12. TRICOR [Concomitant]
     Route: 065
  13. NOVOLIN [Concomitant]
     Route: 065
  14. NAPROXEN [Concomitant]
     Route: 065

REACTIONS (2)
  - CHEST PAIN [None]
  - MYOCARDIAL INFARCTION [None]
